FAERS Safety Report 7020563-X (Version None)
Quarter: 2010Q3

REPORT INFORMATION
  Report Type: 
  Country: None (occurrence: None)
  Receive Date: 20100927
  Receipt Date: 20100909
  Transmission Date: 20110219
  Serious: Yes (Hospitalization, Other)
  Sender: FDA-Public Use
  Company Number: 2010003613

PATIENT
  Age: 69 Year
  Sex: Male

DRUGS (12)
  1. ERLOTINIB/PLACEBO (ERLOTINIB) (TABLET (ERLOTINIB) [Suspect]
     Indication: HEPATIC NEOPLASM MALIGNANT
     Dosage: (100 MG, QD), ORAL
     Route: 048
     Dates: start: 20100809, end: 20100824
  2. ERLOTINIB/PLACEBO (ERLOTINIB) (TABLET (ERLOTINIB) [Suspect]
     Indication: HEPATIC NEOPLASM MALIGNANT
     Dosage: (100 MG, QD), ORAL
     Route: 048
     Dates: start: 20100904
  3. SORAFENIB [Suspect]
     Indication: HEPATIC NEOPLASM MALIGNANT
     Dosage: (400 MG, QD), ORAL
     Route: 048
     Dates: start: 20100809, end: 20100824
  4. SORAFENIB [Suspect]
     Indication: HEPATIC NEOPLASM MALIGNANT
     Dosage: (400 MG, QD), ORAL
     Route: 048
     Dates: start: 20100904
  5. FUROSEMIDE [Concomitant]
  6. SPIRONOLACTONE [Concomitant]
  7. HADOLOL (DOMPERIDONE) [Concomitant]
  8. FORTISIP (FORTISIP) [Concomitant]
  9. COTRIM [Concomitant]
  10. METOCLOPRAKIOE [Concomitant]
  11. TRAMADOL HCL [Concomitant]
  12. ACETAMINOPHEN [Concomitant]

REACTIONS (4)
  - DEHYDRATION [None]
  - HYPONATRAEMIA [None]
  - PERITONEAL TUBERCULOSIS [None]
  - RENAL IMPAIRMENT [None]
